FAERS Safety Report 16495350 (Version 2)
Quarter: 2020Q3

REPORT INFORMATION
  Report Type: Spontaneous
  Country: RS (occurrence: RS)
  Receive Date: 20190628
  Receipt Date: 20200920
  Transmission Date: 20201102
  Serious: Yes (Hospitalization, Other)
  Sender: FDA-Public Use
  Company Number: RS-PFIZER INC-2019273115

PATIENT
  Age: 65 Year
  Sex: Male

DRUGS (4)
  1. SUTENT [Suspect]
     Active Substance: SUNITINIB MALATE
     Indication: METASTATIC RENAL CELL CARCINOMA
     Dosage: 50 MG, CYCLIC (4+2)
     Route: 048
     Dates: start: 201404
  2. SUTENT [Suspect]
     Active Substance: SUNITINIB MALATE
     Dosage: 37.5 MG, CYCLIC, (8TH CYCLE WAS ADMINISTERED IN REDUCED DOSAGE 37. 5MG PO 4+2)
     Route: 048
     Dates: start: 2015, end: 2015
  3. SUTENT [Suspect]
     Active Substance: SUNITINIB MALATE
     Dosage: UNK
     Route: 048
     Dates: end: 201710
  4. SUTENT [Suspect]
     Active Substance: SUNITINIB MALATE
     Dosage: 37.5 MG, CYCLIC, (FROM THE 12TH CYCLE THERAPY WAS ADMINISTERED 37.5MG PO IN  2+1 REGIMEN)
     Route: 048

REACTIONS (17)
  - Hypertension [Unknown]
  - Chronic kidney disease [Unknown]
  - Left ventricular dysfunction [Unknown]
  - Vomiting [Unknown]
  - Thrombocytopenia [Unknown]
  - Anaemia [Unknown]
  - Nausea [Unknown]
  - Arthralgia [Unknown]
  - Fatigue [Unknown]
  - Neoplasm progression [Unknown]
  - Skin discolouration [Unknown]
  - Cardiac failure [Unknown]
  - Diarrhoea [Unknown]
  - Abdominal pain [Unknown]
  - Stomatitis [Unknown]
  - Neutropenia [Unknown]
  - Blood creatinine increased [Unknown]

NARRATIVE: CASE EVENT DATE: 201407
